FAERS Safety Report 6400517-4 (Version None)
Quarter: 2009Q4

REPORT INFORMATION
  Report Type: 
  Country: None (occurrence: None)
  Receive Date: 20091013
  Receipt Date: 20091013
  Transmission Date: 20100525
  Serious: Yes (Other)
  Sender: FDA-Public Use
  Company Number: None

PATIENT
  Age: 58 Year
  Sex: Female
  Weight: 77.1115 kg

DRUGS (1)
  1. ADVAIR DISKUS 100/50 [Suspect]

REACTIONS (4)
  - COUGH [None]
  - DRY THROAT [None]
  - DYSPNOEA [None]
  - PRODUCT SUBSTITUTION ISSUE [None]
